FAERS Safety Report 19772952 (Version 1)
Quarter: 2021Q3

REPORT INFORMATION
  Report Type: Other
  Country: FR (occurrence: FR)
  Receive Date: 20210901
  Receipt Date: 20210901
  Transmission Date: 20211014
  Serious: Yes (Hospitalization, Other)
  Sender: FDA-Public Use
  Company Number: FR-APOTEX-2021AP039748

PATIENT
  Age: 76 Year
  Sex: Male

DRUGS (3)
  1. PAROXETINE HYDROCHLORIDE. [Suspect]
     Active Substance: PAROXETINE HYDROCHLORIDE
     Indication: DEPRESSION
     Dosage: 1.5 DOSAGE FORM, QD
     Route: 048
     Dates: start: 20210618
  2. ZOPICLONE [Suspect]
     Active Substance: ZOPICLONE
     Indication: INSOMNIA
     Dosage: 7.5 MILLIGRAM, QD
     Route: 048
     Dates: start: 20210616
  3. EUPHYTOSE [BALLOTA NIGRA;CRATAEGUS LAEVIGATA;PASSIFLORA INCARNATA;VALE [Suspect]
     Active Substance: HERBALS
     Indication: DEPRESSION
     Dosage: 4 DOSAGE FORM, QD
     Route: 048
     Dates: start: 20210618

REACTIONS (2)
  - Hallucination [Recovered/Resolved]
  - Confusional state [Recovered/Resolved]

NARRATIVE: CASE EVENT DATE: 20210616
